FAERS Safety Report 26169112 (Version 1)
Quarter: 2025Q4

REPORT INFORMATION
  Report Type: Spontaneous
  Country: US (occurrence: None)
  Receive Date: 20251216
  Receipt Date: 20251216
  Transmission Date: 20260117
  Serious: Yes (Hospitalization)
  Sender: FDA-CTU
  Company Number: None

PATIENT
  Sex: Female

DRUGS (14)
  1. KISQALI [Suspect]
     Active Substance: RIBOCICLIB SUCCINATE
     Indication: Breast cancer female
     Dosage: FREQUENCY : DAILY;?FREQ: TAKE 2 TABLETS (400 MG TOTAL) BY MOUTH ONCE DAILY FOR 21 DAYS ON AND 7 DAYS OFF
     Route: 048
     Dates: start: 20251212
  2. LETROZOLE [Suspect]
     Active Substance: LETROZOLE
  3. ZOMETA [Suspect]
     Active Substance: ZOLEDRONIC ACID
  4. TAMOXIFEN [Suspect]
     Active Substance: TAMOXIFEN
  5. ACETAMIN TAB 500MG [Concomitant]
  6. ALBUTEROL AER HFA [Concomitant]
  7. BENZONATATE CAP 200MG [Concomitant]
  8. CELECOXIB CAP 200MG [Concomitant]
  9. CLOTRIMAZOLE TRO 10MG [Concomitant]
  10. FAMOTIDINE TAB 10MG [Concomitant]
  11. FLUTICASONE SPR S0MCG [Concomitant]
  12. ALBUTEROL\IPRATROPIUM BROMIDE [Concomitant]
     Active Substance: ALBUTEROL\IPRATROPIUM BROMIDE
  13. LETROZOLE [Concomitant]
     Active Substance: LETROZOLE
  14. MORPHINE SUL TAB 100MG ER [Concomitant]

REACTIONS (4)
  - Upper respiratory tract infection [None]
  - Rhinovirus infection [None]
  - Heart rate increased [None]
  - Therapy interrupted [None]
